FAERS Safety Report 21884693 (Version 1)
Quarter: 2023Q1

REPORT INFORMATION
  Report Type: Report from Study
  Country: GB (occurrence: GB)
  Receive Date: 20230119
  Receipt Date: 20230119
  Transmission Date: 20230417
  Serious: Yes (Hospitalization)
  Sender: FDA-Public Use
  Company Number: GB-TEVA-2023-GB-2846460

PATIENT
  Age: 57 Year
  Sex: Female

DRUGS (1)
  1. OCTREOTIDE [Suspect]
     Active Substance: OCTREOTIDE
     Indication: Product used for unknown indication

REACTIONS (1)
  - Meningitis viral [Unknown]

NARRATIVE: CASE EVENT DATE: 20230106
